FAERS Safety Report 20536125 (Version 1)
Quarter: 2022Q1

REPORT INFORMATION
  Report Type: Spontaneous
  Country: US (occurrence: None)
  Receive Date: 20220302
  Receipt Date: 20220302
  Transmission Date: 20220423
  Serious: No
  Sender: FDA-Public Use
  Company Number: US-ROCHE-2778025

PATIENT
  Age: 13 Year
  Sex: Male
  Weight: 40.8 kg

DRUGS (6)
  1. NUTROPIN [Suspect]
     Active Substance: SOMATROPIN
     Indication: Growth failure
     Route: 058
     Dates: start: 20181204
  2. NUTROPIN [Suspect]
     Active Substance: SOMATROPIN
     Indication: Growth failure
     Route: 058
  3. NUTROPIN [Suspect]
     Active Substance: SOMATROPIN
     Indication: Chronic kidney disease
     Route: 058
  4. NUTROPIN [Suspect]
     Active Substance: SOMATROPIN
     Indication: Chronic kidney disease
  5. NUTROPIN [Suspect]
     Active Substance: SOMATROPIN
     Indication: Growth failure
     Route: 058
  6. NUTROPIN [Suspect]
     Active Substance: SOMATROPIN
     Indication: Chronic kidney disease
     Route: 058

REACTIONS (4)
  - Product dose omission issue [Unknown]
  - Intentional product use issue [Unknown]
  - Off label use [Unknown]
  - No adverse event [Unknown]
